FAERS Safety Report 25133840 (Version 1)
Quarter: 2025Q1

REPORT INFORMATION
  Report Type: Spontaneous
  Country: US (occurrence: US)
  Receive Date: 20250328
  Receipt Date: 20250328
  Transmission Date: 20250408
  Serious: No
  Sender: ABBVIE
  Company Number: US-ABBVIE-6198129

PATIENT
  Sex: Male
  Weight: 95.254 kg

DRUGS (2)
  1. COMBIGAN [Suspect]
     Active Substance: BRIMONIDINE TARTRATE\TIMOLOL MALEATE
     Indication: Intraocular pressure test abnormal
     Route: 047
     Dates: start: 20250131
  2. DORZOLAMIDE [Concomitant]
     Active Substance: DORZOLAMIDE
     Indication: Intraocular pressure test abnormal

REACTIONS (3)
  - Eye pain [Recovered/Resolved]
  - Hypoaesthesia eye [Recovered/Resolved]
  - Hypoaesthesia [Recovered/Resolved]
